FAERS Safety Report 15276387 (Version 1)
Quarter: 2018Q3

REPORT INFORMATION
  Report Type: Spontaneous
  Country: US (occurrence: US)
  Receive Date: 20180728
  Receipt Date: 20180728
  Transmission Date: 20181010
  Serious: No
  Sender: FDA-Public Use
  Company Number: None

PATIENT
  Age: 24 Year
  Sex: Female

DRUGS (4)
  1. MYCOPHENOLATE MOF TAB 500MG [Suspect]
     Active Substance: MYCOPHENOLATE MOFETIL
     Indication: RENAL TRANSPLANT
  2. PROCARDIA [Concomitant]
     Active Substance: NIFEDIPINE
  3. BUMETANIDE. [Concomitant]
     Active Substance: BUMETANIDE
  4. FIORICET [Concomitant]
     Active Substance: ACETAMINOPHEN\BUTALBITAL\CAFFEINE

REACTIONS (2)
  - Pain [None]
  - Drug dose omission [None]

NARRATIVE: CASE EVENT DATE: 20180728
